FAERS Safety Report 4377509-2 (Version None)
Quarter: 2004Q2

REPORT INFORMATION
  Report Type: 
  Country: None (occurrence: None)
  Receive Date: 20040609
  Receipt Date: 20040430
  Transmission Date: 20050107
  Serious: No
  Sender: FDA-Public Use
  Company Number: 2004213398US

PATIENT
  Age: 53 Year
  Sex: Female

DRUGS (2)
  1. BEXTRA [Suspect]
     Indication: RHEUMATOID ARTHRITIS
     Dosage: 10 MG, QD
     Dates: start: 20040401, end: 20040430
  2. ADVAIR DISKUS 100/50 [Concomitant]

REACTIONS (2)
  - ASTHMA [None]
  - DRY MOUTH [None]
